FAERS Safety Report 5712883-3 (Version None)
Quarter: 2008Q2

REPORT INFORMATION
  Report Type: 
  Country: None (occurrence: None)
  Receive Date: 20080422
  Receipt Date: 20080418
  Transmission Date: 20081010
  Serious: Yes (Hospitalization)
  Sender: FDA-Public Use
  Company Number: B0517620A

PATIENT
  Age: 92 Year
  Sex: Female

DRUGS (2)
  1. CIBLOR [Suspect]
     Indication: BRONCHITIS
     Route: 048
     Dates: start: 20080229, end: 20080307
  2. PROZAC [Suspect]
     Route: 048
     Dates: start: 20080229, end: 20080322

REACTIONS (2)
  - CONFUSIONAL STATE [None]
  - URINARY RETENTION [None]
